FAERS Safety Report 8341882-0 (Version None)
Quarter: 2012Q2

REPORT INFORMATION
  Report Type: 
  Country: None (occurrence: None)
  Receive Date: 20120507
  Receipt Date: 20120424
  Transmission Date: 20120825
  Serious: Yes (Hospitalization)
  Sender: FDA-Public Use
  Company Number: ZA-ELI_LILLY_AND_COMPANY-ZA201205001212

PATIENT
  Sex: Female
  Weight: 42 kg

DRUGS (3)
  1. LANTUS [Concomitant]
     Indication: DIABETES MELLITUS
     Dosage: 30 U, EACH EVENING
     Route: 058
     Dates: start: 19980101
  2. HUMULIN R [Suspect]
     Dosage: 24 U, TID
     Route: 058
     Dates: start: 20120412, end: 20120416
  3. HUMALOG [Suspect]
     Indication: DIABETES MELLITUS
     Dosage: 24 U, TID
     Route: 058
     Dates: start: 19980101

REACTIONS (2)
  - PRURITUS [None]
  - HYPERGLYCAEMIA [None]
